FAERS Safety Report 8487200-9 (Version None)
Quarter: 2012Q3

REPORT INFORMATION
  Report Type: 
  Country: None (occurrence: None)
  Receive Date: 20120705
  Receipt Date: 20120625
  Transmission Date: 20120928
  Serious: Yes (Hospitalization)
  Sender: FDA-Public Use
  Company Number: DE-ROCHE-1074689

PATIENT
  Sex: Female
  Weight: 57 kg

DRUGS (7)
  1. AMLODIPINE [Concomitant]
     Dosage: 0-0-1/2
  2. VINORELBINE TARTRATE [Suspect]
     Indication: BREAST CANCER
     Dosage: LAST DOSE PRIOR TO SAE  18 JUN 2012
     Route: 042
     Dates: start: 20120430
  3. XELODA [Suspect]
     Indication: BREAST CANCER
     Dosage: LAST DOSE PRIOR TO SAE 22 JUN 2012,
     Route: 048
     Dates: start: 20120430
  4. NOVALGIN [Concomitant]
     Dosage: 3X30 TSOPF
  5. AMITRIPTYLINE HCL [Concomitant]
  6. AVASTIN [Suspect]
     Indication: BREAST CANCER
     Dosage: LAST DOSE PRIOR TO SAE 13/JUN/2012
     Dates: start: 20120430
  7. FUROSEMIDE [Concomitant]
     Dosage: 1-0-0

REACTIONS (5)
  - FATIGUE [None]
  - ASTHENIA [None]
  - DECREASED APPETITE [None]
  - GENERAL PHYSICAL HEALTH DETERIORATION [None]
  - DYSPNOEA [None]
